FAERS Safety Report 9812688 (Version 1)
Quarter: 2014Q1

REPORT INFORMATION
  Report Type: Spontaneous
  Country: FR (occurrence: FR)
  Receive Date: 20140113
  Receipt Date: 20140113
  Transmission Date: 20141002
  Serious: Yes (Hospitalization)
  Sender: FDA-Public Use
  Company Number: FR-JNJFOC-20140101690

PATIENT
  Age: 67 Year
  Sex: Female

DRUGS (7)
  1. DOXORUBICIN HYDROCHLORIDE (CAELYX) [Suspect]
     Indication: PRODUCT USED FOR UNKNOWN INDICATION
     Dosage: CYCLE 3
     Route: 042
     Dates: start: 20131115
  2. DOXORUBICIN HYDROCHLORIDE (CAELYX) [Suspect]
     Indication: PRODUCT USED FOR UNKNOWN INDICATION
     Dosage: CYCLE 2
     Route: 042
     Dates: start: 20131018
  3. DOXORUBICIN HYDROCHLORIDE (CAELYX) [Suspect]
     Indication: PRODUCT USED FOR UNKNOWN INDICATION
     Dosage: CYCLE 1
     Route: 042
     Dates: start: 20130920
  4. XGEVA [Suspect]
     Indication: METASTASES TO BONE
     Dosage: SECOND INJECTION
     Route: 042
     Dates: start: 20131106
  5. XGEVA [Suspect]
     Indication: METASTASES TO BONE
     Dosage: FIRST INJECTION
     Route: 042
     Dates: start: 201310
  6. CACIT D3 [Concomitant]
     Route: 065
     Dates: start: 201309
  7. KALEORID [Concomitant]
     Route: 065
     Dates: start: 201309

REACTIONS (2)
  - Acute generalised exanthematous pustulosis [Recovering/Resolving]
  - Pyrexia [Recovered/Resolved]
